FAERS Safety Report 5256686-5 (Version None)
Quarter: 2007Q1

REPORT INFORMATION
  Report Type: 
  Country: None (occurrence: None)
  Receive Date: 20070306
  Receipt Date: 20070222
  Transmission Date: 20070707
  Serious: Yes (Life-Threatening)
  Sender: FDA-Public Use
  Company Number: JP-PFIZER INC-2006141340

PATIENT
  Sex: Female
  Weight: 53 kg

DRUGS (8)
  1. IRINOTECAN HCL [Suspect]
     Indication: OVARIAN CANCER RECURRENT
     Route: 042
     Dates: start: 20050930, end: 20051121
  2. SOLU-MEDROL [Suspect]
     Indication: INTERSTITIAL LUNG DISEASE
     Dates: start: 20051002, end: 20051003
  3. SOLU-MEDROL [Suspect]
     Indication: LYMPHANGIOSIS CARCINOMATOSA
     Dates: start: 20051004, end: 20051004
  4. PREDONINE [Suspect]
     Indication: INTERSTITIAL LUNG DISEASE
     Route: 048
     Dates: start: 20051005
  5. PREDONINE [Suspect]
     Indication: LYMPHANGIOSIS CARCINOMATOSA
     Dates: start: 20051019, end: 20051128
  6. METHYLPREDNISOLONE SODIUM SUCCINATE [Suspect]
     Indication: INTERSTITIAL LUNG DISEASE
     Dosage: FREQ:EVERY 2 DAYS - TOTAL 10 TIMES
     Route: 042
  7. METHYLPREDNISOLONE SODIUM SUCCINATE [Suspect]
     Indication: LYMPHANGIOSIS CARCINOMATOSA
  8. CISPLATIN [Concomitant]
     Indication: OVARIAN CANCER RECURRENT
     Route: 042
     Dates: start: 20050930, end: 20051102

REACTIONS (3)
  - DIARRHOEA [None]
  - INTERSTITIAL LUNG DISEASE [None]
  - INTESTINAL PERFORATION [None]
